FAERS Safety Report 24669022 (Version 1)
Quarter: 2024Q4

REPORT INFORMATION
  Report Type: Spontaneous
  Country: US (occurrence: US)
  Receive Date: 20241127
  Receipt Date: 20241127
  Transmission Date: 20250115
  Serious: Yes (Other)
  Sender: ABBVIE
  Company Number: US-ABBVIE-6015410

PATIENT
  Age: 32 Year
  Sex: Female

DRUGS (2)
  1. VRAYLAR [Suspect]
     Active Substance: CARIPRAZINE
     Indication: Bipolar I disorder
     Dosage: FREQUENCY: EVERY OTHER DAY, DOSE FORM : ORAL SOLUTION
     Route: 048
     Dates: start: 20240117, end: 20241029
  2. VRAYLAR [Suspect]
     Active Substance: CARIPRAZINE
     Indication: Bipolar I disorder
     Dosage: FREQUENCY: EVERY DAY, DOSE FORM : ORAL SOLUTION, STOP DATE: 2024
     Route: 048
     Dates: start: 20241029

REACTIONS (1)
  - Seizure [Recovered/Resolved]

NARRATIVE: CASE EVENT DATE: 20241102
